FAERS Safety Report 10733599 (Version 3)
Quarter: 2015Q2

REPORT INFORMATION
  Report Type: Spontaneous
  Country: US (occurrence: US)
  Receive Date: 20150123
  Receipt Date: 20150519
  Transmission Date: 20150821
  Serious: Yes (Other)
  Sender: FDA-Public Use
  Company Number: US-GLAXOSMITHKLINE-US2015003700

PATIENT
  Age: 50 Year
  Sex: Male

DRUGS (2)
  1. TIVICAY [Suspect]
     Active Substance: DOLUTEGRAVIR SODIUM
     Indication: HIV INFECTION
     Dosage: 50 MG, QD
     Route: 048
     Dates: start: 20140915
  2. EPZICOM [Suspect]
     Active Substance: ABACAVIR SULFATE\LAMIVUDINE
     Indication: HIV INFECTION
     Dosage: 1 DF, QD
     Route: 048
     Dates: start: 20140915

REACTIONS (43)
  - Type 2 diabetes mellitus [Not Recovered/Not Resolved]
  - Nasopharyngitis [Not Recovered/Not Resolved]
  - Blood glucose decreased [Unknown]
  - Dizziness [Unknown]
  - Jaundice [Unknown]
  - Angina pectoris [Unknown]
  - Blood glucose increased [Unknown]
  - Quality of life decreased [Not Recovered/Not Resolved]
  - Rhinorrhoea [Not Recovered/Not Resolved]
  - Dyspnoea [Unknown]
  - Constipation [Unknown]
  - Renal pain [Recovering/Resolving]
  - Hepatitis [Unknown]
  - Pain [Recovering/Resolving]
  - Visual acuity reduced [Unknown]
  - Ocular icterus [Unknown]
  - Asthenia [Unknown]
  - Diabetic coma [Unknown]
  - Skin necrosis [Unknown]
  - Muscle atrophy [Not Recovered/Not Resolved]
  - Abdominal pain [Not Recovered/Not Resolved]
  - Nervousness [Unknown]
  - Arthropathy [Unknown]
  - Ill-defined disorder [Not Recovered/Not Resolved]
  - Restlessness [Unknown]
  - Cough [Not Recovered/Not Resolved]
  - Cachexia [Unknown]
  - Hyperglycaemia [Unknown]
  - Enzyme inhibition [Unknown]
  - Abdominal pain upper [Recovering/Resolving]
  - Emotional distress [Not Recovered/Not Resolved]
  - Vision blurred [Not Recovered/Not Resolved]
  - Fatigue [Unknown]
  - Insomnia [Unknown]
  - Arthralgia [Unknown]
  - Chills [Unknown]
  - Sneezing [Not Recovered/Not Resolved]
  - Weight decreased [Not Recovered/Not Resolved]
  - Anxiety [Unknown]
  - Hepatic pain [Recovering/Resolving]
  - Feeling cold [Not Recovered/Not Resolved]
  - Pancreatic disorder [Unknown]
  - Asthenia [Unknown]

NARRATIVE: CASE EVENT DATE: 201409
